FAERS Safety Report 24704156 (Version 2)
Quarter: 2025Q2

REPORT INFORMATION
  Report Type: Report from Study
  Country: CA (occurrence: CA)
  Receive Date: 20241206
  Receipt Date: 20250626
  Transmission Date: 20250717
  Serious: Yes (Other)
  Sender: CELLTRION
  Company Number: CA-CELLTRION INC.-2024CA030406

PATIENT

DRUGS (5)
  1. ADALIMUMAB-AATY [Suspect]
     Active Substance: ADALIMUMAB-AATY
     Indication: Ankylosing spondylitis
     Dosage: 40 MG, Q2WEEKS/1 EVERY 2 WEEKS
     Route: 058
     Dates: start: 20231024
  2. AMLODIPINE [Concomitant]
     Active Substance: AMLODIPINE BESYLATE
     Route: 065
  3. IBUPROFEN [Concomitant]
     Active Substance: IBUPROFEN
  4. NAPROXEN [Concomitant]
     Active Substance: NAPROXEN
  5. PERINDOPRIL [Concomitant]
     Active Substance: PERINDOPRIL

REACTIONS (2)
  - Uveitis [Not Recovered/Not Resolved]
  - Intentional product use issue [Not Recovered/Not Resolved]
